FAERS Safety Report 11666608 (Version 1)
Quarter: 2015Q4

REPORT INFORMATION
  Report Type: Spontaneous
  Country: US (occurrence: US)
  Receive Date: 20151027
  Receipt Date: 20151027
  Transmission Date: 20160304
  Serious: No
  Sender: FDA-Public Use
  Company Number: US-ELI_LILLY_AND_COMPANY-US201002001647

PATIENT
  Sex: Female

DRUGS (6)
  1. FOLIC ACID. [Concomitant]
     Active Substance: FOLIC ACID
  2. PREDNISONE. [Concomitant]
     Active Substance: PREDNISONE
  3. VITAMIN D [Concomitant]
     Active Substance: CHOLECALCIFEROL
  4. FORTEO [Suspect]
     Active Substance: TERIPARATIDE
     Indication: OSTEOPOROSIS
     Dosage: 20 UG, DAILY (1/D)
     Dates: start: 200811, end: 201001
  5. ANTIHYPERTENSIVES [Concomitant]
     Active Substance: UNSPECIFIED INGREDIENT
  6. VITAMIN C [Concomitant]
     Active Substance: ASCORBIC ACID

REACTIONS (5)
  - Chest pain [Recovered/Resolved]
  - Blood calcium increased [Recovered/Resolved]
  - Insomnia [Unknown]
  - Back pain [Recovered/Resolved]
  - Anxiety [Recovered/Resolved]
